FAERS Safety Report 19501182 (Version 1)
Quarter: 2021Q3

REPORT INFORMATION
  Report Type: Report from Study
  Country: DE (occurrence: DE)
  Receive Date: 20210707
  Receipt Date: 20210707
  Transmission Date: 20211014
  Serious: Yes (Hospitalization)
  Sender: FDA-Public Use
  Company Number: DE-TAKEDA-2021TUS040035

PATIENT
  Age: 53 Year
  Sex: Male
  Weight: 94 kg

DRUGS (6)
  1. BORTEZOMIB. [Suspect]
     Active Substance: BORTEZOMIB
     Indication: WALDENSTROM^S MACROGLOBULINAEMIA
     Dosage: 3.39 MILLIGRAM
     Route: 058
     Dates: start: 20210504, end: 20210615
  2. IBRUTINIB [Suspect]
     Active Substance: IBRUTINIB
     Dosage: 280 MILLIGRAM
     Route: 048
     Dates: start: 20210616
  3. IBRUTINIB [Suspect]
     Active Substance: IBRUTINIB
     Dosage: 280 MILLIGRAM
     Route: 048
     Dates: start: 20210602, end: 20210617
  4. RITUXIMAB. [Suspect]
     Active Substance: RITUXIMAB
     Dosage: 795 MILLIGRAM
     Route: 058
  5. IBRUTINIB [Suspect]
     Active Substance: IBRUTINIB
     Indication: WALDENSTROM^S MACROGLOBULINAEMIA
     Dosage: 420 MILLIGRAM
     Route: 048
     Dates: start: 20210504, end: 20210527
  6. RITUXIMAB. [Suspect]
     Active Substance: RITUXIMAB
     Indication: WALDENSTROM^S MACROGLOBULINAEMIA
     Dosage: 795 MILLIGRAM
     Route: 042
     Dates: start: 20210504

REACTIONS (2)
  - Viral infection [Recovered/Resolved]
  - Headache [Recovered/Resolved]

NARRATIVE: CASE EVENT DATE: 20210617
